FAERS Safety Report 13017248 (Version 1)
Quarter: 2016Q4

REPORT INFORMATION
  Report Type: Spontaneous
  Country: US (occurrence: US)
  Receive Date: 20161212
  Receipt Date: 20161212
  Transmission Date: 20170207
  Serious: Yes (Other)
  Sender: FDA-Public Use
  Company Number: US-PFIZER INC-2016567977

PATIENT
  Age: 19 Year
  Sex: Male
  Weight: 57 kg

DRUGS (2)
  1. STRATTERA [Concomitant]
     Active Substance: ATOMOXETINE HYDROCHLORIDE
     Indication: ATTENTION DEFICIT/HYPERACTIVITY DISORDER
     Dosage: 1 DF, DAILY
  2. EFFEXOR XR [Suspect]
     Active Substance: VENLAFAXINE HYDROCHLORIDE
     Indication: ANXIETY
     Dosage: 2 DF, 1X/DAY
     Dates: start: 201611

REACTIONS (7)
  - Intentional product misuse [Unknown]
  - Seizure [Unknown]
  - Mydriasis [Not Recovered/Not Resolved]
  - Mania [Unknown]
  - Heart rate increased [Recovered/Resolved]
  - Intentional product use issue [Unknown]
  - Cardiac disorder [Unknown]

NARRATIVE: CASE EVENT DATE: 2016
